FAERS Safety Report 9527099 (Version 2)
Quarter: 2014Q2

REPORT INFORMATION
  Report Type: Spontaneous
  Country: US (occurrence: US)
  Receive Date: 20130916
  Receipt Date: 20140409
  Transmission Date: 20141212
  Serious: Yes (Hospitalization)
  Sender: FDA-Public Use
  Company Number: US-B.I. PHARMACEUTICALS,INC./RIDGEFIELD-2013-BI-28361BP

PATIENT
  Sex: Male
  Weight: 108.86 kg

DRUGS (16)
  1. PRADAXA [Suspect]
     Indication: ATRIAL FIBRILLATION
     Dosage: 300 MG
     Route: 065
     Dates: start: 20110629, end: 20110905
  2. ALDACTONE [Concomitant]
     Dosage: 25 MG
     Route: 048
  3. NORCO [Concomitant]
     Route: 048
  4. PROVENTIL [Concomitant]
     Route: 055
  5. GLUCOPHAGE [Concomitant]
     Route: 048
  6. CRESTOR [Concomitant]
     Dosage: 20 MG
     Route: 048
  7. ELAVIL [Concomitant]
     Dosage: 50 MG
     Route: 048
  8. LISINOPRIL [Concomitant]
     Dosage: 40 MG
     Route: 048
  9. COREG [Concomitant]
     Dosage: 12.5 MG
     Route: 048
  10. LASIX [Concomitant]
     Dosage: 80 MG
     Route: 048
  11. HUMALOG [Concomitant]
     Route: 058
  12. NIASPAN [Concomitant]
     Dosage: 1000 MG
     Route: 048
  13. NORVASC [Concomitant]
     Dosage: 5 MG
     Route: 048
  14. ECOTRIN LOW STRENGTH [Concomitant]
     Dosage: 81 MG
     Route: 048
  15. CORDARONE [Concomitant]
     Dosage: 400 MG
     Route: 048
  16. GLIPIZIDE [Concomitant]
     Route: 048

REACTIONS (3)
  - Gastric ulcer haemorrhage [Unknown]
  - Haemorrhagic anaemia [Unknown]
  - Renal failure acute [Unknown]
